FAERS Safety Report 9135755 (Version 1)
Quarter: 2013Q1

REPORT INFORMATION
  Report Type: Spontaneous
  Country: IT (occurrence: IT)
  Receive Date: 20130304
  Receipt Date: 20130304
  Transmission Date: 20140127
  Serious: Yes (Hospitalization)
  Sender: FDA-Public Use
  Company Number: IT-PFIZER INC-2013071900

PATIENT
  Age: 49 Year
  Sex: Female
  Weight: 65 kg

DRUGS (6)
  1. METHYLPREDNISOLONE [Suspect]
     Indication: SERONEGATIVE ARTHRITIS
     Dosage: 8 MG, 1X/DAY
     Route: 048
     Dates: start: 20120714
  2. METHOTREXATE [Suspect]
     Indication: SERONEGATIVE ARTHRITIS
     Dosage: 10 MG, WEEKLY
     Route: 058
     Dates: start: 20120723, end: 20130111
  3. INDOMETACIN [Suspect]
     Indication: MIGRAINE
     Dosage: 25 MG, AS NEEDED
     Route: 048
     Dates: start: 20110101
  4. TRAVATAN [Concomitant]
     Indication: GLAUCOMA
  5. PARIET [Concomitant]
  6. TIMOLOL [Concomitant]

REACTIONS (3)
  - Abdominal pain upper [Not Recovered/Not Resolved]
  - Nausea [Not Recovered/Not Resolved]
  - Decreased appetite [Not Recovered/Not Resolved]
